FAERS Safety Report 8767470 (Version 2)
Quarter: 2013Q2

REPORT INFORMATION
  Report Type: Report from Study
  Country: JP (occurrence: JP)
  Receive Date: 20120904
  Receipt Date: 20130514
  Transmission Date: 20140414
  Serious: No
  Sender: FDA-Public Use
  Company Number: JP-VERTEX PHARMACEUTICAL INC.-AE-2012-008344

PATIENT
  Age: 52 Year
  Sex: Female

DRUGS (14)
  1. VX-950 (TELAPREVIR) [Suspect]
     Indication: HEPATITIS C
     Dosage: 2250 MG, QD
     Route: 048
     Dates: start: 20120523, end: 20120530
  2. VX-950 (TELAPREVIR) [Suspect]
     Dosage: 1500 MG, QD
     Route: 048
     Dates: start: 20120531, end: 20120814
  3. RIBAVIRIN [Suspect]
     Indication: HEPATITIS C
     Dosage: 600 MG, QD
     Route: 048
     Dates: start: 20120523, end: 20120530
  4. RIBAVIRIN [Suspect]
     Dosage: 400 MG, QD
     Route: 048
     Dates: start: 20120601, end: 20120611
  5. RIBAVIRIN [Suspect]
     Dosage: 600 MG, QD
     Route: 048
     Dates: start: 20120612, end: 20120618
  6. RIBAVIRIN [Suspect]
     Dosage: 400 MG, QD
     Route: 048
     Dates: start: 20120619, end: 20120709
  7. RIBAVIRIN [Suspect]
     Dosage: 200 MG, QD
     Route: 048
     Dates: start: 20120710, end: 20121204
  8. PEGINTERFERON ALFA-2B [Suspect]
     Indication: HEPATITIS C
     Dosage: 1.5 ?G, QW
     Route: 058
     Dates: start: 20120523, end: 20120529
  9. PEGINTERFERON ALFA-2B [Suspect]
     Dosage: 1.1 ?G, UNK
     Route: 058
     Dates: start: 20120530, end: 20120618
  10. PEGINTERFERON ALFA-2B [Suspect]
     Dosage: 0.6 ?G,QW
     Route: 058
     Dates: start: 20120619, end: 20120625
  11. PEGINTERFERON ALFA-2B [Suspect]
     Dosage: 0.75 ?G,QW
     Route: 058
     Dates: start: 20120626, end: 20120716
  12. PEGINTERFERON ALFA-2B [Suspect]
     Dosage: 0.95 ?G, QW
     Route: 058
     Dates: start: 20120717, end: 20120723
  13. PEGINTERFERON ALFA-2B [Suspect]
     Dosage: 0.75 ?G,QW
     Route: 058
     Dates: start: 20120724, end: 20121204
  14. MUCOSTA [Concomitant]
     Dosage: 100 MG, QD
     Route: 048
     Dates: start: 20120523

REACTIONS (1)
  - Platelet count decreased [Recovered/Resolved]
